FAERS Safety Report 8585261-X (Version None)
Quarter: 2012Q3

REPORT INFORMATION
  Report Type: 
  Country: None (occurrence: None)
  Receive Date: 20120810
  Receipt Date: 20120808
  Transmission Date: 20120928
  Serious: Yes (Death)
  Sender: FDA-Public Use
  Company Number: PHFR2012GB004379

PATIENT
  Age: 65 Year
  Sex: Female
  Weight: 96 kg

DRUGS (7)
  1. ASPIRIN [Concomitant]
  2. LOSARTAN POTASSIUM [Concomitant]
  3. ALISKIREN [Suspect]
     Indication: HYPERTENSION
     Dosage: 150 MG DAILY
     Route: 048
     Dates: start: 20090501, end: 20090602
  4. ACETAMINOPHEN AND CODEINE PHOSPHATE [Concomitant]
  5. ALISKIREN [Suspect]
     Dosage: 300 MG, UNK
     Route: 048
     Dates: start: 20090602, end: 20120416
  6. OMEPRAZOLE [Concomitant]
  7. ALVERINE [Concomitant]

REACTIONS (1)
  - DEATH [None]
